FAERS Safety Report 20587401 (Version 3)
Quarter: 2022Q3

REPORT INFORMATION
  Report Type: Report from Study
  Country: MX (occurrence: MX)
  Receive Date: 20220314
  Receipt Date: 20220801
  Transmission Date: 20221027
  Serious: Yes (Other)
  Sender: FDA-Public Use
  Company Number: MX-NOVARTISPH-NVSC2022MX057975

PATIENT
  Sex: Female
  Weight: 60 kg

DRUGS (3)
  1. GLYCOPYRRONIUM\INDACATEROL [Suspect]
     Active Substance: GLYCOPYRRONIUM\INDACATEROL
     Indication: Pneumonia
     Dosage: 1 DOSAGE FORM (110/50 UG)
     Route: 055
  2. GLYCOPYRRONIUM\INDACATEROL [Suspect]
     Active Substance: GLYCOPYRRONIUM\INDACATEROL
     Dosage: 1 DOSAGE FORM, QD
     Route: 048
  3. GLYCOPYRRONIUM\INDACATEROL [Suspect]
     Active Substance: GLYCOPYRRONIUM\INDACATEROL
     Dosage: 1 DOSAGE FORM, QD(110/50UG) FROM 4 TO 5 YEARS AGO
     Route: 055

REACTIONS (3)
  - Macular oedema [Not Recovered/Not Resolved]
  - Visual impairment [Recovering/Resolving]
  - Off label use [Unknown]
